FAERS Safety Report 9274424 (Version 6)
Quarter: 2014Q1

REPORT INFORMATION
  Report Type: Report from Study
  Country: US (occurrence: US)
  Receive Date: 20130506
  Receipt Date: 20140108
  Transmission Date: 20141002
  Serious: Yes (Other)
  Sender: FDA-Public Use
  Company Number: PHEH2012US025850

PATIENT
  Sex: Female

DRUGS (2)
  1. EXTAVIA [Suspect]
     Indication: MULTIPLE SCLEROSIS
     Dosage: 0.25 MG, QOD
     Route: 058
     Dates: start: 20110329
  2. COPAXONE [Concomitant]
     Dosage: UNK UKN, UNK

REACTIONS (11)
  - Gait disturbance [Not Recovered/Not Resolved]
  - Intervertebral disc displacement [Not Recovered/Not Resolved]
  - Fall [Not Recovered/Not Resolved]
  - Central nervous system lesion [Not Recovered/Not Resolved]
  - Muscular weakness [Not Recovered/Not Resolved]
  - Limb discomfort [Not Recovered/Not Resolved]
  - Skin injury [Unknown]
  - Injection site mass [Unknown]
  - Injection site reaction [Unknown]
  - Injection site pain [Unknown]
  - Injection site bruising [Recovered/Resolved]
